FAERS Safety Report 6560354-7 (Version None)
Quarter: 2010Q1

REPORT INFORMATION
  Report Type: 
  Country: None (occurrence: None)
  Receive Date: 20100129
  Receipt Date: 20090921
  Transmission Date: 20100710
  Serious: No
  Sender: FDA-Public Use
  Company Number: US-ABBOTT-09P-163-0599041-00

PATIENT
  Sex: Female
  Weight: 72.64 kg

DRUGS (4)
  1. HUMIRA [Suspect]
     Indication: PSORIATIC ARTHROPATHY
     Route: 058
     Dates: start: 20090911, end: 20090921
  2. CYMBALTA [Suspect]
     Indication: DEPRESSION
     Route: 048
     Dates: end: 20090923
  3. RESTORIL [Suspect]
     Indication: INSOMNIA
     Route: 048
     Dates: end: 20090923
  4. BENICAR [Concomitant]
     Indication: HYPERTENSION
     Route: 048

REACTIONS (9)
  - ANGER [None]
  - CRYING [None]
  - FATIGUE [None]
  - HYPERHIDROSIS [None]
  - MENTAL DISORDER [None]
  - NAUSEA [None]
  - PARAESTHESIA [None]
  - SCREAMING [None]
  - VOMITING [None]
